FAERS Safety Report 10010170 (Version 3)
Quarter: 2015Q3

REPORT INFORMATION
  Report Type: Spontaneous
  Country: US (occurrence: US)
  Receive Date: 20140312
  Receipt Date: 20150924
  Transmission Date: 20151125
  Serious: No
  Sender: FDA-Public Use
  Company Number: US-INCYTE CORPORATION-2013IN001696

PATIENT
  Age: 93 Year
  Sex: Female
  Weight: 86.17 kg

DRUGS (22)
  1. JAKAFI [Suspect]
     Active Substance: RUXOLITINIB
     Indication: MYELOFIBROSIS
     Dosage: 20 MG, AM AND 10 MG, PM
     Route: 048
     Dates: start: 20130628, end: 20140708
  2. JAKAFI [Suspect]
     Active Substance: RUXOLITINIB
     Dosage: 10 MG, BID
     Route: 048
     Dates: start: 20140708
  3. TYLENOL [Concomitant]
     Active Substance: ACETAMINOPHEN
  4. COENZYME Q10 [Concomitant]
     Active Substance: UBIDECARENONE
  5. COLACE [Concomitant]
     Active Substance: DOCUSATE SODIUM
  6. ANAGRELIDE [Concomitant]
     Active Substance: ANAGRELIDE
  7. FAMOTIDINE. [Concomitant]
     Active Substance: FAMOTIDINE
  8. HYDROCODONE COMPOUND               /01224801/ [Concomitant]
  9. METOPROLOL                         /00376902/ [Concomitant]
     Active Substance: METOPROLOL
  10. CITALOPRAM [Concomitant]
     Active Substance: CITALOPRAM HYDROBROMIDE
  11. LIPITOR [Concomitant]
     Active Substance: ATORVASTATIN CALCIUM
  12. PLAVIX [Concomitant]
     Active Substance: CLOPIDOGREL BISULFATE
  13. ISOSORBIDE. [Concomitant]
     Active Substance: ISOSORBIDE
  14. SPIRONOLACTONE. [Concomitant]
     Active Substance: SPIRONOLACTONE
  15. AMIODARONE                         /00133102/ [Concomitant]
     Active Substance: AMIODARONE
  16. POTASSIUM                          /00209301/ [Concomitant]
     Active Substance: POTASSIUM BICARBONATE\POTASSIUM CHLORIDE
  17. LASIX [Concomitant]
     Active Substance: FUROSEMIDE
  18. LEVOTHYROXINE. [Concomitant]
     Active Substance: LEVOTHYROXINE
  19. TRAZODONE [Concomitant]
     Active Substance: TRAZODONE HYDROCHLORIDE
  20. CRANBERRY                          /01512301/ [Concomitant]
     Active Substance: CRANBERRY
  21. MIRABEGRON [Concomitant]
     Active Substance: MIRABEGRON
  22. VESICARE [Concomitant]
     Active Substance: SOLIFENACIN SUCCINATE

REACTIONS (1)
  - Tooth infection [Unknown]

NARRATIVE: CASE EVENT DATE: 20130725
